FAERS Safety Report 4960348-9 (Version None)
Quarter: 2006Q1

REPORT INFORMATION
  Report Type: 
  Country: None (occurrence: None)
  Receive Date: 20060328
  Receipt Date: 20060316
  Transmission Date: 20060701
  Serious: Yes (Death, Life-Threatening, Hospitalization)
  Sender: FDA-Public Use
  Company Number: CERZ-11166

PATIENT
  Age: 20 Year
  Sex: Male
  Weight: 65 kg

DRUGS (5)
  1. CEREZYME [Suspect]
     Indication: GAUCHER'S DISEASE
     Dates: start: 20051117, end: 20060227
  2. UNSPECIFIED ANTICONVULSANT [Concomitant]
  3. TOPIROMATO [Concomitant]
  4. AMANTADINE HCL [Concomitant]
  5. CLONAZEPAM [Concomitant]

REACTIONS (12)
  - CARDIAC DISORDER [None]
  - COMA [None]
  - CONVULSION [None]
  - CYANOSIS [None]
  - LOWER RESPIRATORY TRACT INFECTION [None]
  - PNEUMOCOCCAL SEPSIS [None]
  - PNEUMONIA [None]
  - RENAL FAILURE [None]
  - SEPTIC SHOCK [None]
  - STAPHYLOCOCCAL SEPSIS [None]
  - URINARY TRACT INFECTION [None]
  - VIRAL INFECTION [None]
